FAERS Safety Report 9003915 (Version 1)
Quarter: 2013Q1

REPORT INFORMATION
  Report Type: Spontaneous
  Country: US (occurrence: US)
  Receive Date: 20130108
  Receipt Date: 20130108
  Transmission Date: 20140127
  Serious: Yes (Hospitalization, Other)
  Sender: FDA-Public Use
  Company Number: US-009507513-1301USA001390

PATIENT
  Age: 20 Year
  Sex: Female

DRUGS (6)
  1. MONTELUKAST SODIUM [Suspect]
     Dosage: 1 TABLET PER DAY
     Route: 048
  2. BECLOVENT [Suspect]
     Dosage: TWICE PER DAY INHALED
  3. LORATADINE [Suspect]
     Dosage: 10 MG, QD
     Route: 048
  4. SEREVENT DISKUS [Suspect]
     Dosage: FOUR TIMES PER DAY INHALE
  5. CEFPODOXIME PROXETIL [Concomitant]
  6. PREDNISONE [Concomitant]

REACTIONS (1)
  - Meningitis aseptic [Unknown]
